FAERS Safety Report 12124326 (Version 2)
Quarter: 2016Q1

REPORT INFORMATION
  Report Type: Report from Study
  Country: IN (occurrence: IN)
  Receive Date: 20160228
  Receipt Date: 20160316
  Transmission Date: 20160526
  Serious: Yes (Hospitalization, Other)
  Sender: FDA-Public Use
  Company Number: IN-ROCHE-1714668

PATIENT
  Age: 58 Year
  Sex: Female

DRUGS (1)
  1. HERCLON [Suspect]
     Active Substance: TRASTUZUMAB
     Indication: BREAST CANCER
     Route: 042
     Dates: start: 201506, end: 20160216

REACTIONS (5)
  - Anxiety [Recovering/Resolving]
  - Chills [Unknown]
  - Blood pressure increased [Recovering/Resolving]
  - Pleural effusion [Recovering/Resolving]
  - Cardiac disorder [Recovering/Resolving]

NARRATIVE: CASE EVENT DATE: 201602
